FAERS Safety Report 14490674 (Version 3)
Quarter: 2018Q1

REPORT INFORMATION
  Report Type: Spontaneous
  Country: IL (occurrence: IL)
  Receive Date: 20180206
  Receipt Date: 20180315
  Transmission Date: 20180509
  Serious: Yes (Death, Life-Threatening)
  Sender: FDA-Public Use
  Company Number: IL-UNITED THERAPEUTICS-UNT-2018-001372

PATIENT
  Age: 19 Year
  Sex: Female

DRUGS (2)
  1. TYVASO [Suspect]
     Active Substance: TREPROSTINIL
     Dosage: 18 ?G, QID
     Dates: start: 201801
  2. TYVASO [Suspect]
     Active Substance: TREPROSTINIL
     Indication: PULMONARY ARTERIAL HYPERTENSION
     Dosage: UNK
     Dates: start: 201801

REACTIONS (4)
  - Venoocclusive disease [Unknown]
  - Disease progression [Recovering/Resolving]
  - Sepsis [Fatal]
  - Therapy non-responder [Unknown]

NARRATIVE: CASE EVENT DATE: 201802
